FAERS Safety Report 23539758 (Version 1)
Quarter: 2024Q1

REPORT INFORMATION
  Report Type: Spontaneous
  Country: US (occurrence: US)
  Receive Date: 20240219
  Receipt Date: 20240219
  Transmission Date: 20240409
  Serious: No
  Sender: FDA-Public Use
  Company Number: US-ABBVIE-5644685

PATIENT
  Sex: Male

DRUGS (1)
  1. BOTOX [Suspect]
     Active Substance: ONABOTULINUMTOXINA
     Indication: Back pain
     Dosage: TIME INTERVAL: AS NECESSARY: BOTOX THERAPEUTIC
     Route: 065

REACTIONS (1)
  - Off label use [Unknown]
